FAERS Safety Report 4600002-6 (Version None)
Quarter: 2005Q1

REPORT INFORMATION
  Report Type: 
  Country: None (occurrence: None)
  Receive Date: 20050303
  Receipt Date: 20050208
  Transmission Date: 20050727
  Serious: Yes (Hospitalization, Other)
  Sender: FDA-Public Use
  Company Number: WAES 0411GBR00095

PATIENT
  Age: 72 Year
  Sex: Female

DRUGS (6)
  1. VIOXX [Suspect]
     Indication: NEOPLASM PROPHYLAXIS
     Dosage: 25 MG/DAILY PO
     Route: 048
     Dates: start: 20031103, end: 20041004
  2. ASPIRIN [Concomitant]
  3. ATENOLOL [Concomitant]
  4. GLICLAZIDE [Concomitant]
  5. NITROGLYCERIN [Concomitant]
  6. SIMVASTATIN [Concomitant]

REACTIONS (2)
  - COLON CANCER [None]
  - MYOCARDIAL ISCHAEMIA [None]
